FAERS Safety Report 7128413-8 (Version None)
Quarter: 2010Q4

REPORT INFORMATION
  Report Type: 
  Country: None (occurrence: None)
  Receive Date: 20101130
  Receipt Date: 20101123
  Transmission Date: 20110411
  Serious: Yes (Life-Threatening, Hospitalization)
  Sender: FDA-Public Use
  Company Number: PHFR2010GB05591

PATIENT
  Age: 58 Year
  Sex: Male
  Weight: 95 kg

DRUGS (7)
  1. METHYLPHENIDATE [Suspect]
     Indication: SOMNOLENCE
     Dosage: 15 MG, QD
     Route: 048
     Dates: start: 20020101, end: 20101101
  2. AMITRIPTYLINE [Concomitant]
     Indication: ANALGESIC THERAPY
     Dosage: 25 MG
     Route: 048
  3. AMLODIPINE [Concomitant]
     Indication: ANGINA PECTORIS
     Dosage: 5 MG, QD
     Route: 048
     Dates: end: 20101028
  4. ACETYLSALICYLATE [Concomitant]
     Indication: MYOCARDIAL ISCHAEMIA
     Dosage: 75 MG, QD
     Route: 048
  5. ATENOLOL [Concomitant]
     Indication: HYPERTENSION
     Dosage: 50 MG, QD
     Route: 048
     Dates: start: 20020501, end: 20101028
  6. RAMIPRIL [Concomitant]
     Dosage: 10 MG, QD
     Route: 048
     Dates: end: 20101028
  7. SIMVASTATIN [Concomitant]
     Indication: HYPERCHOLESTEROLAEMIA
     Dosage: 10 MG, QD
     Route: 048

REACTIONS (3)
  - CARDIOPULMONARY BYPASS [None]
  - PULMONARY HYPERTENSION [None]
  - RIGHT VENTRICULAR FAILURE [None]
